FAERS Safety Report 17685498 (Version 1)
Quarter: 2020Q2

REPORT INFORMATION
  Report Type: Spontaneous
  Country: FI (occurrence: FI)
  Receive Date: 20200420
  Receipt Date: 20200420
  Transmission Date: 20200714
  Serious: Yes (Other)
  Sender: FDA-Public Use
  Company Number: FI-MYLANLABS-2020M1038822

PATIENT
  Age: 20 Year
  Sex: Male

DRUGS (4)
  1. ZYPADHERA [Suspect]
     Active Substance: OLANZAPINE PAMOATE
     Dosage: 600 MILLIGRAM, MONTHLY, 300 MG, 2/M
     Route: 030
     Dates: start: 20191216
  2. AMPHETAMINE [Concomitant]
     Active Substance: AMPHETAMINE
     Indication: PRODUCT USED FOR UNKNOWN INDICATION
     Dosage: UNK
  3. OLANZAPINE. [Suspect]
     Active Substance: OLANZAPINE
     Indication: PRODUCT USED FOR UNKNOWN INDICATION
     Dosage: UNK UNK, UNKNOWN
     Route: 048
  4. ZYPADHERA [Suspect]
     Active Substance: OLANZAPINE PAMOATE
     Indication: SCHIZOPHRENIA
     Dosage: 600 MILLIGRAM, MONTHLY, 300 MG, 2/M
     Route: 030
     Dates: start: 201804, end: 201910

REACTIONS (7)
  - Post-injection delirium sedation syndrome [Recovered/Resolved]
  - Fatigue [Unknown]
  - Arrhythmia [Recovered/Resolved]
  - Restlessness [Recovered/Resolved]
  - Palpitations [Recovered/Resolved]
  - Feeling abnormal [Recovered/Resolved]
  - Psychotic disorder [Recovered/Resolved]

NARRATIVE: CASE EVENT DATE: 20191216
